FAERS Safety Report 13976585 (Version 3)
Quarter: 2017Q4

REPORT INFORMATION
  Report Type: Spontaneous
  Country: JP (occurrence: JP)
  Receive Date: 20170915
  Receipt Date: 20171116
  Transmission Date: 20180321
  Serious: Yes (Hospitalization)
  Sender: FDA-Public Use
  Company Number: JP-AMGEN-JPNSP2017140220

PATIENT
  Age: 68 Year
  Sex: Male
  Weight: 74 kg

DRUGS (11)
  1. AMLODIPINE [Concomitant]
     Active Substance: AMLODIPINE BESYLATE
     Dosage: 5 MG, BID, AFTER BREAKFAST, DINNER
     Route: 048
  2. LEUPLIN [Concomitant]
     Active Substance: LEUPROLIDE ACETATE
     Dosage: 11.25 MG, UNK
     Route: 058
     Dates: start: 201209
  3. TAMSULOSIN HYDROCHLORIDE. [Concomitant]
     Active Substance: TAMSULOSIN HYDROCHLORIDE
     Dosage: 0.2 MG, QD, AFTER DINNER
     Route: 048
  4. CLOPIDOGREL [Concomitant]
     Active Substance: CLOPIDOGREL BISULFATE
     Dosage: 75 MG, QD, AFTER BREAKFAST
     Route: 048
  5. RANMARK [Suspect]
     Active Substance: DENOSUMAB
     Dosage: 120 MG, Q4WK
     Route: 058
     Dates: start: 20170914
  6. DENOTAS [Concomitant]
     Active Substance: CALCIUM CARBONATE\CHOLECALCIFEROL\MAGNESIUM CARBONATE
     Dosage: 2 DF, QD, AFTER BREAKFAST
     Route: 065
     Dates: start: 201308, end: 201707
  7. ESTRACYT [Concomitant]
     Active Substance: ESTRAMUSTINE PHOSPHATE SODIUM
     Dosage: 156.7 MG, BID, AFTER BREAKFAST, DINNER
     Route: 048
     Dates: start: 201606
  8. PRAVASTATIN NA [Concomitant]
     Active Substance: PRAVASTATIN SODIUM
     Dosage: 10 MG, QD, AFTER BREAKFAST
     Route: 048
  9. URINORM [Concomitant]
     Active Substance: BENZBROMARONE
     Dosage: 50 MG, QD, AFTER BREAKFAST
     Route: 048
  10. RANMARK [Suspect]
     Active Substance: DENOSUMAB
     Indication: PROSTATE CANCER
     Dosage: 120 MG, Q4WK
     Route: 058
     Dates: start: 20121220, end: 20170427
  11. TAIPROTON [Concomitant]
     Active Substance: LANSOPRAZOLE
     Dosage: 30 MG, QD, AFTER BREAKFAST
     Route: 048

REACTIONS (1)
  - Osteonecrosis of jaw [Recovering/Resolving]

NARRATIVE: CASE EVENT DATE: 20170416
